FAERS Safety Report 5191649-X (Version None)
Quarter: 2006Q4

REPORT INFORMATION
  Report Type: 
  Country: None (occurrence: None)
  Receive Date: 20061219
  Receipt Date: 20061207
  Transmission Date: 20070319
  Serious: Yes (Other)
  Sender: FDA-Public Use
  Company Number: 2006151508

PATIENT
  Sex: 0

DRUGS (1)
  1. DOXAZOSIN MESYLATE [Suspect]
     Dosage: ORAL
     Route: 048
     Dates: start: 20061001

REACTIONS (1)
  - INTERSTITIAL LUNG DISEASE [None]
